FAERS Safety Report 15821840 (Version 1)
Quarter: 2019Q1

REPORT INFORMATION
  Report Type: Spontaneous
  Country: US (occurrence: US)
  Receive Date: 20190114
  Receipt Date: 20190114
  Transmission Date: 20190417
  Serious: Yes (Other)
  Sender: FDA-Public Use
  Company Number: None

PATIENT
  Age: 72 Year
  Sex: Female

DRUGS (3)
  1. FENOFIBRATE. [Suspect]
     Active Substance: FENOFIBRATE
     Indication: BLOOD CHOLESTEROL INCREASED
     Dosage: ?          QUANTITY:1 CAPSULE(S);?
     Route: 048
     Dates: start: 20190112, end: 20190112
  2. CHINESE MEDICATIONS [Concomitant]
  3. NATURAL HERBS [Concomitant]

REACTIONS (6)
  - Swelling face [None]
  - Rash [None]
  - Pyrexia [None]
  - Blood pressure increased [None]
  - Cough [None]
  - Hypersomnia [None]

NARRATIVE: CASE EVENT DATE: 20190112
